FAERS Safety Report 15311853 (Version 3)
Quarter: 2018Q3

REPORT INFORMATION
  Report Type: Report from Study
  Country: None (occurrence: CA)
  Receive Date: 20180823
  Receipt Date: 20180925
  Transmission Date: 20181010
  Serious: Yes (Other)
  Sender: FDA-Public Use
  Company Number: CA-ABBVIE-18S-028-2459469-00

PATIENT
  Sex: Female
  Weight: 63.56 kg

DRUGS (2)
  1. LUPRON DEPOT [Suspect]
     Active Substance: LEUPROLIDE ACETATE
     Indication: UTERINE LEIOMYOMA
     Route: 030
     Dates: start: 20170829
  2. VITAMINS [Concomitant]
     Active Substance: VITAMINS
     Indication: PRODUCT USED FOR UNKNOWN INDICATION

REACTIONS (6)
  - Treatment noncompliance [Not Recovered/Not Resolved]
  - Uterine leiomyoma [Unknown]
  - Surgery [Unknown]
  - Back pain [Unknown]
  - Abdominal distension [Unknown]
  - Uterine leiomyoma embolisation [Unknown]

NARRATIVE: CASE EVENT DATE: 2018
